FAERS Safety Report 7250789-1 (Version None)
Quarter: 2011Q1

REPORT INFORMATION
  Report Type: 
  Country: None (occurrence: None)
  Receive Date: 20110128
  Receipt Date: 20110124
  Transmission Date: 20110831
  Serious: Yes (Death)
  Sender: FDA-Public Use
  Company Number: US-CELGENEUS-163-21880-10123234

PATIENT
  Sex: Male

DRUGS (8)
  1. DEXAMETHASONE [Concomitant]
     Route: 048
  2. PRILOSEC [Concomitant]
     Route: 048
  3. ZOMETA [Concomitant]
     Dosage: 4MG/5ML
     Route: 050
  4. ASPIRIN [Concomitant]
     Route: 048
  5. CALCIUM [Concomitant]
     Dosage: 600
     Route: 048
  6. REVLIMID [Suspect]
     Indication: MULTIPLE MYELOMA
     Route: 048
     Dates: start: 20100907
  7. VITAMIN D [Concomitant]
     Route: 048
  8. VITAMIN B-12 [Concomitant]
     Dosage: 1000
     Route: 048

REACTIONS (1)
  - DEATH [None]
